FAERS Safety Report 24851779 (Version 3)
Quarter: 2025Q1

REPORT INFORMATION
  Report Type: Spontaneous
  Country: US (occurrence: US)
  Receive Date: 20250116
  Receipt Date: 20250204
  Transmission Date: 20250408
  Serious: Yes (Disabling, Other)
  Sender: AMGEN
  Company Number: US-AMGEN-USASP2025004672

PATIENT
  Age: 62 Year
  Sex: Male

DRUGS (93)
  1. TEPEZZA [Suspect]
     Active Substance: TEPROTUMUMAB-TRBW
     Indication: Endocrine ophthalmopathy
     Dosage: 870 MILLIGRAM, Q3WK (FIRST INFUSION)
     Route: 040
     Dates: start: 20230220
  2. TEPEZZA [Suspect]
     Active Substance: TEPROTUMUMAB-TRBW
     Indication: Toxic goitre
     Dosage: 1740 MILLIGRAM, Q3WK (SECOND INFUSION)
     Route: 040
     Dates: start: 20230316, end: 20230316
  3. TEPEZZA [Suspect]
     Active Substance: TEPROTUMUMAB-TRBW
     Dosage: 1740 MILLIGRAM, Q3WK
     Route: 040
     Dates: start: 20230331
  4. TEPEZZA [Suspect]
     Active Substance: TEPROTUMUMAB-TRBW
     Dosage: 1740 MILLIGRAM, Q3WK
     Route: 040
     Dates: start: 20230421
  5. TEPEZZA [Suspect]
     Active Substance: TEPROTUMUMAB-TRBW
     Dosage: 1740 MILLIGRAM, Q3WK
     Route: 040
     Dates: start: 20230512
  6. TEPEZZA [Suspect]
     Active Substance: TEPROTUMUMAB-TRBW
     Dosage: 1740 MILLIGRAM, Q3WK
     Route: 040
     Dates: start: 20230602
  7. TEPEZZA [Suspect]
     Active Substance: TEPROTUMUMAB-TRBW
     Dosage: 1740 MILLIGRAM, Q3WK
     Route: 040
     Dates: start: 20230623
  8. TEPEZZA [Suspect]
     Active Substance: TEPROTUMUMAB-TRBW
     Dosage: 1740 MILLIGRAM, Q3WK
     Route: 040
     Dates: start: 20230714, end: 20230714
  9. TEPEZZA [Suspect]
     Active Substance: TEPROTUMUMAB-TRBW
     Dosage: 1740 MILLIGRAM, Q3WK
     Route: 040
     Dates: start: 20230714, end: 20230714
  10. PREDNISONE [Suspect]
     Active Substance: PREDNISONE
     Indication: Product used for unknown indication
     Route: 048
     Dates: start: 20201118, end: 20210106
  11. PREDNISONE [Suspect]
     Active Substance: PREDNISONE
     Dosage: 20 MILLIGRAM, QD (TAKE ONE TABLET FOR 5 DAYS)
     Route: 048
     Dates: end: 20230110
  12. MONTELUKAST [Concomitant]
     Active Substance: MONTELUKAST
     Dosage: 10 MILLIGRAM, QD
     Route: 048
  13. PANTOPRAZOLE [Concomitant]
     Active Substance: PANTOPRAZOLE
     Dosage: 40 MILLIGRAM, QD
     Route: 048
  14. AMBIEN [Concomitant]
     Active Substance: ZOLPIDEM TARTRATE
     Indication: Insomnia
     Route: 048
     Dates: start: 20201029, end: 20201125
  15. AMBIEN [Concomitant]
     Active Substance: ZOLPIDEM TARTRATE
     Route: 048
     Dates: start: 20201125, end: 20201223
  16. AMBIEN [Concomitant]
     Active Substance: ZOLPIDEM TARTRATE
     Route: 048
     Dates: start: 20201223, end: 20210125
  17. AMBIEN [Concomitant]
     Active Substance: ZOLPIDEM TARTRATE
     Route: 048
     Dates: start: 20210125, end: 20210223
  18. AMBIEN [Concomitant]
     Active Substance: ZOLPIDEM TARTRATE
     Route: 048
     Dates: start: 20210225, end: 20210325
  19. AMBIEN [Concomitant]
     Active Substance: ZOLPIDEM TARTRATE
     Route: 048
     Dates: start: 20210325
  20. AMBIEN [Concomitant]
     Active Substance: ZOLPIDEM TARTRATE
     Route: 048
  21. AMBIEN [Concomitant]
     Active Substance: ZOLPIDEM TARTRATE
     Route: 048
     Dates: start: 20221221, end: 20230119
  22. PROPRANOLOL [Concomitant]
     Active Substance: PROPRANOLOL HYDROCHLORIDE
     Indication: Heart rate increased
     Dosage: 10 MILLIGRAM, TID (TAKE 1 TABLET)
     Route: 048
  23. PROPRANOLOL [Concomitant]
     Active Substance: PROPRANOLOL HYDROCHLORIDE
     Dosage: 10 MILLIGRAM, TID (TAKE 2 TABLET)
     Route: 048
     Dates: end: 20230110
  24. NORVASC [Concomitant]
     Active Substance: AMLODIPINE BESYLATE
     Dosage: 5 MILLIGRAM, QD
     Route: 048
  25. HYDROCODONE [Concomitant]
     Active Substance: HYDROCODONE
     Dosage: 10 MILLIGRAM, Q6H
     Route: 048
  26. SODIUM CHLORIDE [Concomitant]
     Active Substance: SODIUM CHLORIDE
     Route: 065
  27. SODIUM CHLORIDE [Concomitant]
     Active Substance: SODIUM CHLORIDE
     Route: 065
  28. SODIUM CHLORIDE [Concomitant]
     Active Substance: SODIUM CHLORIDE
     Route: 065
  29. FLEXERIL [Concomitant]
     Active Substance: CYCLOBENZAPRINE HYDROCHLORIDE
     Route: 065
  30. VALIUM [Concomitant]
     Active Substance: DIAZEPAM
     Indication: Anxiety
     Dosage: 5 MILLIGRAM, BID
     Route: 048
     Dates: start: 20201029, end: 20201125
  31. VALIUM [Concomitant]
     Active Substance: DIAZEPAM
     Dosage: 5 MILLIGRAM, BID
     Route: 048
     Dates: start: 20201125, end: 20201223
  32. VALIUM [Concomitant]
     Active Substance: DIAZEPAM
     Dosage: 5 MILLIGRAM, BID
     Route: 048
     Dates: start: 20201223, end: 20210125
  33. VALIUM [Concomitant]
     Active Substance: DIAZEPAM
     Dosage: 5 MILLIGRAM, BID
     Route: 048
     Dates: start: 20210125, end: 20210223
  34. HYDROCODONE\IBUPROFEN [Concomitant]
     Active Substance: HYDROCODONE\IBUPROFEN
     Route: 048
  35. TROPICAMIDE [Concomitant]
     Active Substance: TROPICAMIDE
     Route: 065
  36. PHENYLEPHRINE [Concomitant]
     Active Substance: PHENYLEPHRINE
     Route: 065
  37. RESTASIS [Concomitant]
     Active Substance: CYCLOSPORINE
     Dosage: 1 DROP, Q12H (0.05 PERCENT )
     Route: 047
  38. NORCO [Concomitant]
     Active Substance: ACETAMINOPHEN\HYDROCODONE BITARTRATE
     Indication: Back pain
     Dosage: 335 MILLIGRAM, BID (10 MG-325 MG)
     Route: 048
     Dates: start: 20201029, end: 20201125
  39. NORCO [Concomitant]
     Active Substance: ACETAMINOPHEN\HYDROCODONE BITARTRATE
     Dosage: 335 MILLIGRAM, BID (10 MG-325 MG)
     Route: 048
     Dates: start: 20201125, end: 20201223
  40. NORCO [Concomitant]
     Active Substance: ACETAMINOPHEN\HYDROCODONE BITARTRATE
     Dosage: 335 MILLIGRAM, BID (10 MG-325 MG)
     Route: 048
     Dates: start: 20201223, end: 20210120
  41. NORCO [Concomitant]
     Active Substance: ACETAMINOPHEN\HYDROCODONE BITARTRATE
     Dosage: 335 MILLIGRAM, BID (10 MG-325 MG)
     Route: 048
     Dates: start: 20210125, end: 20210223
  42. ZITHROMAX [Concomitant]
     Active Substance: AZITHROMYCIN DIHYDRATE
     Route: 048
     Dates: start: 20201118, end: 20201124
  43. DEBROX [Concomitant]
     Active Substance: CARBAMIDE PEROXIDE
     Route: 065
  44. MEDROL [Concomitant]
     Active Substance: METHYLPREDNISOLONE
     Route: 048
     Dates: start: 20201216, end: 20201221
  45. MEDROL [Concomitant]
     Active Substance: METHYLPREDNISOLONE
     Route: 048
     Dates: start: 20211229, end: 20220103
  46. PROAIR HFA [Concomitant]
     Active Substance: ALBUTEROL SULFATE
     Dates: start: 20201216
  47. PROAIR HFA [Concomitant]
     Active Substance: ALBUTEROL SULFATE
     Dates: start: 20210106, end: 20210125
  48. PROAIR HFA [Concomitant]
     Active Substance: ALBUTEROL SULFATE
     Dates: start: 20210125
  49. ZITHROMAX [Concomitant]
     Active Substance: AZITHROMYCIN DIHYDRATE
     Route: 048
     Dates: start: 20201216, end: 20201220
  50. ZITHROMAX [Concomitant]
     Active Substance: AZITHROMYCIN DIHYDRATE
     Route: 048
     Dates: start: 20211229, end: 20220102
  51. ZITHROMAX [Concomitant]
     Active Substance: AZITHROMYCIN DIHYDRATE
     Route: 048
     Dates: start: 20220721, end: 20220725
  52. VITAMIN D2 [Concomitant]
     Active Substance: ERGOCALCIFEROL
     Route: 048
     Dates: start: 20201216, end: 20210125
  53. VITAMIN D2 [Concomitant]
     Active Substance: ERGOCALCIFEROL
     Route: 048
     Dates: start: 20210125
  54. VITAMIN D2 [Concomitant]
     Active Substance: ERGOCALCIFEROL
     Dosage: 1250 MICROGRAM, QWK
     Route: 048
     Dates: start: 20211229
  55. DECADRON [Concomitant]
     Active Substance: DEXAMETHASONE
     Route: 030
  56. XOPENEX [Concomitant]
     Active Substance: LEVALBUTEROL HYDROCHLORIDE
  57. DEXAMETHASONE [Concomitant]
     Active Substance: DEXAMETHASONE
     Route: 048
     Dates: start: 20201229, end: 20210106
  58. ALBUTEROL\IPRATROPIUM [Concomitant]
     Active Substance: ALBUTEROL\IPRATROPIUM
     Dosage: 3 MILLILITER, QID
     Dates: start: 20201229, end: 20210125
  59. ALBUTEROL\IPRATROPIUM [Concomitant]
     Active Substance: ALBUTEROL\IPRATROPIUM
     Dosage: 3 MILLILITER, QID
     Dates: start: 20210125
  60. SINGULAIR [Concomitant]
     Active Substance: MONTELUKAST SODIUM
     Route: 048
     Dates: start: 20201229, end: 20210125
  61. SINGULAIR [Concomitant]
     Active Substance: MONTELUKAST SODIUM
     Route: 048
     Dates: start: 20211209
  62. ACETAMINOPHEN\HYDROCODONE [Concomitant]
     Active Substance: ACETAMINOPHEN\HYDROCODONE
     Indication: Back pain
     Dosage: 335 MILLIGRAM, BID (10 MG/ 325 MG)
     Route: 048
     Dates: start: 20210225, end: 20210325
  63. ACETAMINOPHEN\HYDROCODONE [Concomitant]
     Active Substance: ACETAMINOPHEN\HYDROCODONE
     Dosage: 335 MILLIGRAM, BID (10 MG/ 325 MG)
     Route: 048
     Dates: start: 20210623, end: 20230119
  64. ACETAMINOPHEN\HYDROCODONE [Concomitant]
     Active Substance: ACETAMINOPHEN\HYDROCODONE
     Dosage: 335 MILLIGRAM, Q6H
     Route: 048
  65. ACETAMINOPHEN\HYDROCODONE [Concomitant]
     Active Substance: ACETAMINOPHEN\HYDROCODONE
     Dosage: 332.5 MILLIGRAM, Q8H (7.5 MG 325 MG)
     Route: 048
  66. BUSPIRONE [Concomitant]
     Active Substance: BUSPIRONE HYDROCHLORIDE
     Route: 048
     Dates: start: 20210728, end: 20211025
  67. HYDROCHLOROTHIAZIDE [Concomitant]
     Active Substance: HYDROCHLOROTHIAZIDE
     Indication: Oedema peripheral
     Route: 048
     Dates: start: 20210907
  68. AVODART [Concomitant]
     Active Substance: DUTASTERIDE
     Route: 048
     Dates: start: 20211020, end: 20220117
  69. FLOMAX [Concomitant]
     Active Substance: TAMSULOSIN HYDROCHLORIDE
     Route: 048
     Dates: start: 20211020, end: 20220117
  70. BENADRYL ALLERGY [Concomitant]
     Active Substance: DIPHENHYDRAMINE HYDROCHLORIDE
     Route: 048
     Dates: start: 20211117
  71. SILDENAFIL [Concomitant]
     Active Substance: SILDENAFIL
     Indication: Erectile dysfunction
     Route: 048
     Dates: start: 20211117
  72. BACTRIM DS [Concomitant]
     Active Substance: SULFAMETHOXAZOLE\TRIMETHOPRIM
     Dosage: 960 MILLIGRAM, Q12H
     Route: 048
     Dates: start: 20211209
  73. ERYTHROMYCIN [Concomitant]
     Active Substance: ERYTHROMYCIN
     Dosage: UNK UNK, TID  (5 MG/GRAM)
     Route: 047
  74. ASPIRIN [Concomitant]
     Active Substance: ASPIRIN
     Route: 048
     Dates: start: 20211229
  75. BENZONATATE [Concomitant]
     Active Substance: BENZONATATE
     Indication: Cough
     Dosage: 100 MILLIGRAM, Q4H
     Route: 048
     Dates: start: 20220125, end: 20230110
  76. FLONASE ALLERGY RELIEF [Concomitant]
     Active Substance: FLUTICASONE PROPIONATE
     Dosage: UNK UNK, BID (50 MCG/ACTUATION NASAL SPRAY,SUSPENSION) (SPRAY 1 SPRAY EACH NOSTRIL)
     Route: 045
     Dates: start: 20220721
  77. PROPRANOLOL HYDROCHLORIDE [Concomitant]
     Active Substance: PROPRANOLOL HYDROCHLORIDE
     Dosage: 10 MILLIGRAM, BID
     Route: 048
  78. PROPRANOLOL HYDROCHLORIDE [Concomitant]
     Active Substance: PROPRANOLOL HYDROCHLORIDE
     Dosage: 10 MILLIGRAM, QID
  79. VISINE TEARS DRY EYE RELIEF [Concomitant]
     Active Substance: GLYCERIN\HYPROMELLOSES\POLYETHYLENE GLYCOL 400
     Indication: Dry eye
     Route: 047
  80. XIIDRA [Concomitant]
     Active Substance: LIFITEGRAST
     Dosage: 1 DROP, BID (5 %)
     Route: 047
  81. Artificial tears [Concomitant]
  82. PROPARACAINE [Concomitant]
     Active Substance: PROPARACAINE
     Route: 047
  83. CYCLOBENZAPRINE [Concomitant]
     Active Substance: CYCLOBENZAPRINE
     Dosage: 10 MILLIGRAM, BID
     Route: 048
  84. AMOXICILLIN [Concomitant]
     Active Substance: AMOXICILLIN
     Dosage: 500 MILLIGRAM, TID
     Route: 048
     Dates: end: 20230717
  85. DOXYCYCLINE HYCLATE [Concomitant]
     Active Substance: DOXYCYCLINE HYCLATE
     Dosage: 100 MILLIGRAM, BID (WITH MEAL FOR 10 DAYS)
     Route: 048
     Dates: end: 20231017
  86. CLINDAMYCIN HYDROCHLORIDE [Concomitant]
     Active Substance: CLINDAMYCIN HYDROCHLORIDE
     Dosage: 300 MILLIGRAM, QID
     Route: 048
     Dates: end: 20230110
  87. AZITHROMYCIN [Concomitant]
     Active Substance: AZITHROMYCIN
     Route: 048
     Dates: end: 20230110
  88. CIPROFLOXACIN [Concomitant]
     Active Substance: CIPROFLOXACIN
     Dosage: 500 MILLIGRAM, BID (BEGIN THE NIGHT BEFORE BIOPSY)
     Route: 048
     Dates: end: 20230714
  89. ZOLPIDEM [Concomitant]
     Active Substance: ZOLPIDEM TARTRATE
     Dosage: 10 MILLIGRAM, QD (BEDTIME)
     Route: 048
     Dates: end: 20230912
  90. ALBUTEROL SULFATE [Concomitant]
     Active Substance: ALBUTEROL SULFATE
  91. FLUTICASONE PROPIONATE [Concomitant]
     Active Substance: FLUTICASONE PROPIONATE
     Dosage: UNK UNK, BID (EACH NOSTRIL)
  92. TADALAFIL [Concomitant]
     Active Substance: TADALAFIL
     Dosage: 5 MILLIGRAM, QD
     Route: 048
  93. AFRIN [Concomitant]
     Active Substance: OXYMETAZOLINE HYDROCHLORIDE
     Route: 065

REACTIONS (76)
  - Deafness neurosensory [Not Recovered/Not Resolved]
  - Dementia [Unknown]
  - Hypothyroidism [Unknown]
  - Exophthalmos [Unknown]
  - Blindness [Unknown]
  - Diabetes mellitus [Unknown]
  - Cataract nuclear [Unknown]
  - Hyperthyroidism [Unknown]
  - Urinary retention [Unknown]
  - Pain [Unknown]
  - Emotional distress [Unknown]
  - Anxiety [Unknown]
  - Impaired quality of life [Unknown]
  - Product use complaint [Unknown]
  - Nasal congestion [Unknown]
  - Acute sinusitis [Unknown]
  - Cough [Unknown]
  - Cerumen impaction [Unknown]
  - Back pain [Unknown]
  - Insomnia [Unknown]
  - Lymphadenopathy [Unknown]
  - Sciatica [Unknown]
  - Fatigue [Unknown]
  - COVID-19 [Unknown]
  - Muscle spasms [Unknown]
  - Spinal osteoarthritis [Unknown]
  - Malaise [Unknown]
  - Dyspnoea [Unknown]
  - Benign prostatic hyperplasia [Unknown]
  - Cervical radiculopathy [Unknown]
  - Palpitations [Unknown]
  - Abnormal loss of weight [Unknown]
  - Tremor [Unknown]
  - Blood thyroid stimulating hormone decreased [Unknown]
  - Thyroxine free increased [Unknown]
  - Thyroid stimulating immunoglobulin increased [Unknown]
  - Nasopharyngitis [Unknown]
  - Testicular failure [Unknown]
  - Blood glucose increased [Unknown]
  - Carbon dioxide increased [Unknown]
  - Blood bilirubin increased [Unknown]
  - Haemoglobin decreased [Unknown]
  - Haematocrit decreased [Unknown]
  - Mean platelet volume increased [Unknown]
  - Lymphocyte count increased [Unknown]
  - Scrotal swelling [Unknown]
  - Hydrocele [Recovered/Resolved]
  - Dry eye [Unknown]
  - Gastrooesophageal reflux disease [Unknown]
  - Lymphocyte count increased [Unknown]
  - Bilirubin conjugated increased [Unknown]
  - Blood cholesterol increased [Unknown]
  - Low density lipoprotein increased [Unknown]
  - Vitamin D decreased [Unknown]
  - Type V hyperlipidaemia [Unknown]
  - Headache [Unknown]
  - Osteoarthritis [Unknown]
  - Overweight [Unknown]
  - Lower urinary tract symptoms [Unknown]
  - Essential hypertension [Unknown]
  - Bladder neck obstruction [Unknown]
  - Dyspepsia [Unknown]
  - Nausea [Unknown]
  - Alopecia [Unknown]
  - Non-high-density lipoprotein cholesterol increased [Unknown]
  - Rhinitis allergic [Unknown]
  - Tooth loss [Unknown]
  - Arthralgia [Unknown]
  - Paraesthesia [Unknown]
  - Neck pain [Unknown]
  - Pollakiuria [Unknown]
  - Blood triglycerides increased [Unknown]
  - Dysuria [Unknown]
  - Scrotal inflammation [Unknown]
  - Hypoaesthesia [Unknown]
  - Paraesthesia [Unknown]

NARRATIVE: CASE EVENT DATE: 20201215
